FAERS Safety Report 13615200 (Version 4)
Quarter: 2017Q3

REPORT INFORMATION
  Report Type: Report from Study
  Country: US (occurrence: US)
  Receive Date: 20170606
  Receipt Date: 20170819
  Transmission Date: 20171127
  Serious: Yes (Other)
  Sender: FDA-Public Use
  Company Number: US-SHIRE-US201712043

PATIENT
  Age: 66 Year
  Sex: Female
  Weight: 81.63 kg

DRUGS (20)
  1. CALCIUM [Concomitant]
     Active Substance: CALCIUM
     Indication: OSTEOPOROSIS
     Dosage: 600 MG, 2X/DAY:BID
     Route: 048
     Dates: start: 2015
  2. FLUTICASONE PROPIONATE. [Concomitant]
     Active Substance: FLUTICASONE PROPIONATE
     Indication: HYPERSENSITIVITY
     Dosage: UNK, AS REQ^D
     Route: 045
  3. AMBIEN [Concomitant]
     Active Substance: ZOLPIDEM TARTRATE
  4. L-THYROXINE                        /00068001/ [Concomitant]
     Active Substance: LEVOTHYROXINE
     Indication: HYPOTHYROIDISM
     Dosage: 50 ?G, 1X/DAY:QD
     Route: 048
  5. VITAMIN D                          /00107901/ [Concomitant]
     Active Substance: ERGOCALCIFEROL
     Indication: OSTEOPOROSIS
     Dosage: 1000 UNITS, 2X/DAY:BID
     Route: 048
     Dates: start: 2015
  6. NASONEX [Concomitant]
     Active Substance: MOMETASONE FUROATE
  7. SUPER OMEGA 3                      /01334101/ [Concomitant]
     Indication: DRY SKIN
     Dosage: 380 MG-EPA 190, OTHER (MON, WED, FRI)
     Route: 048
  8. PATANASE [Concomitant]
     Active Substance: OLOPATADINE HYDROCHLORIDE
  9. BEPREVE [Concomitant]
     Active Substance: BEPOTASTINE BESILATE
  10. K-TAB [Concomitant]
     Active Substance: POTASSIUM CHLORIDE
  11. MONTELUKAST [Concomitant]
     Active Substance: MONTELUKAST SODIUM
  12. SYSTANE (HYPROMELLOSE 2910 (4000 MPA.S)) [Concomitant]
     Active Substance: HYPROMELLOSE 2910 (4000 MPA.S)
  13. ALLEGRA [Concomitant]
     Active Substance: FEXOFENADINE HYDROCHLORIDE
     Indication: HYPERSENSITIVITY
     Dosage: 180 MG, OTHER (ONCE PER MONTH)
     Route: 048
  14. VITAMIN B12 [Concomitant]
     Active Substance: CYANOCOBALAMIN
     Indication: SUPPLEMENTATION THERAPY
     Dosage: 6000 ?G, QOD
     Route: 060
  15. POTASSIUM [Concomitant]
     Active Substance: POTASSIUM
     Indication: MUSCLE SPASMS
     Dosage: UNK, OTHER (THREE TIMES PER WEEK)
     Route: 048
  16. XIIDRA [Suspect]
     Active Substance: LIFITEGRAST
     Indication: DRY EYE
     Dosage: 1 GTT (IN EACH EYE), OTHER (AS PRESCRIBED))
     Route: 047
     Dates: start: 201703, end: 201705
  17. DETROL LA [Concomitant]
     Active Substance: TOLTERODINE TARTRATE
     Indication: INCONTINENCE
     Dosage: 4 MG, 1X/DAY:QD
     Route: 048
  18. ASPIRIN 81 [Concomitant]
     Active Substance: ASPIRIN
     Indication: CEREBROVASCULAR ACCIDENT PROPHYLAXIS
     Dosage: 81 MG, OTHER (MON, WED, AND FRI)
     Route: 048
  19. MAGNESIUM [Concomitant]
     Active Substance: MAGNESIUM
     Indication: OSTEOPOROSIS
     Dosage: 250 MG, 2X/DAY:BID
     Route: 048
     Dates: start: 2015
  20. VITAMIN K [Concomitant]
     Active Substance: PHYTONADIONE
     Indication: OSTEOPOROSIS
     Dosage: 100 ?G, OTHER (THREE TIMES A WEEK)
     Route: 048
     Dates: start: 2015

REACTIONS (7)
  - Contraindicated product administered [Unknown]
  - Conjunctival haemorrhage [Recovered/Resolved]
  - Product storage error [Unknown]
  - Eye haemorrhage [Not Recovered/Not Resolved]
  - Instillation site irritation [Unknown]
  - Ocular discomfort [Unknown]
  - Product quality issue [Unknown]

NARRATIVE: CASE EVENT DATE: 2017
